FAERS Safety Report 7248007-3 (Version None)
Quarter: 2011Q1

REPORT INFORMATION
  Report Type: 
  Country: None (occurrence: None)
  Receive Date: 20110127
  Receipt Date: 20110112
  Transmission Date: 20110831
  Serious: Yes (Other)
  Sender: FDA-Public Use
  Company Number: US-BAYER-2011-004244

PATIENT
  Sex: Female
  Weight: 79.365 kg

DRUGS (13)
  1. ALFALFA [Concomitant]
  2. GLUCOSAMINE [GLUCOSAMINE] [Concomitant]
  3. CALCIUM PLUS [CALCIUM] [Concomitant]
  4. ASPIRIN [Suspect]
     Indication: PAIN
     Dosage: 325 MG, PRN, COUNT BOTTLE 50S
     Route: 048
  5. LASIX [Suspect]
     Indication: PRODUCT USED FOR UNKNOWN INDICATION
     Dosage: UNK
     Dates: start: 20101122
  6. MULTI-VITAMIN [Concomitant]
  7. VITAMIN B [Concomitant]
  8. VITAMIN A [Concomitant]
  9. ASPIRIN [Suspect]
     Indication: PRODUCT USED FOR UNKNOWN INDICATION
     Dosage: COUNT BOTTLE 120S
     Route: 048
  10. VITAMIN E [Concomitant]
  11. GARLIC [Concomitant]
  12. BETA-CAROTIN [Concomitant]
  13. FISH OIL [Concomitant]

REACTIONS (4)
  - RENAL DISORDER [None]
  - OEDEMA PERIPHERAL [None]
  - LIVER DISORDER [None]
  - FATIGUE [None]
